FAERS Safety Report 8913706 (Version 2)
Quarter: 2013Q4

REPORT INFORMATION
  Report Type: Spontaneous
  Country: US (occurrence: US)
  Receive Date: 20121119
  Receipt Date: 20131118
  Transmission Date: 20140711
  Serious: No
  Sender: FDA-Public Use
  Company Number: US-JNJFOC-20121102947

PATIENT
  Age: 34 Year
  Sex: Female
  Weight: 54.43 kg

DRUGS (5)
  1. DURAGESIC [Suspect]
     Indication: BACK PAIN
     Route: 062
     Dates: start: 20121031
  2. DURAGESIC [Suspect]
     Indication: BACK PAIN
     Route: 062
     Dates: start: 20121024, end: 20121031
  3. PERCOCET [Concomitant]
     Indication: PAIN
     Dosage: 10/325 MG ONCE EVERY 6 HOURS AS NEEDED
     Route: 048
  4. PROCHLORPERAZINE [Concomitant]
     Indication: VOMITING
     Dosage: EVERY 6 HOURS AS NEEDED
     Route: 048
  5. PROCHLORPERAZINE [Concomitant]
     Indication: NAUSEA
     Dosage: EVERY 6 HOURS AS NEEDED
     Route: 048

REACTIONS (9)
  - Wrong technique in drug usage process [Not Recovered/Not Resolved]
  - Exposure during pregnancy [Not Recovered/Not Resolved]
  - Drug effect incomplete [Not Recovered/Not Resolved]
  - Drug administered at inappropriate site [Not Recovered/Not Resolved]
  - Weight increased [Not Recovered/Not Resolved]
  - Vomiting [Not Recovered/Not Resolved]
  - Product adhesion issue [Unknown]
  - Nausea [Not Recovered/Not Resolved]
  - Application site erythema [Not Recovered/Not Resolved]
